FAERS Safety Report 13568666 (Version 1)
Quarter: 2017Q2

REPORT INFORMATION
  Report Type: Spontaneous
  Country: GB (occurrence: GB)
  Receive Date: 20170522
  Receipt Date: 20170522
  Transmission Date: 20170830
  Serious: Yes (Disabling, Other)
  Sender: FDA-Public Use
  Company Number: GB-MYLANLABS-2017M1029884

PATIENT

DRUGS (3)
  1. ALENDRONATE [Suspect]
     Active Substance: ALENDRONATE SODIUM
     Indication: OSTEOPOROSIS
     Dosage: 1 DF, QW
     Route: 048
     Dates: start: 201504, end: 201611
  2. ATORVASTATIN [Suspect]
     Active Substance: ATORVASTATIN
     Indication: BLOOD CHOLESTEROL INCREASED
     Dosage: POSSIBLY 5MG
     Route: 048
     Dates: start: 201607, end: 201611
  3. INDAPAMIDE. [Concomitant]
     Active Substance: INDAPAMIDE
     Dosage: UNK

REACTIONS (4)
  - Myalgia [Recovering/Resolving]
  - Muscle tightness [Unknown]
  - Hypotonia [Recovering/Resolving]
  - Visual impairment [Unknown]

NARRATIVE: CASE EVENT DATE: 201506
